FAERS Safety Report 8452375-4 (Version None)
Quarter: 2012Q2

REPORT INFORMATION
  Report Type: 
  Country: None (occurrence: None)
  Receive Date: 20120620
  Receipt Date: 20120409
  Transmission Date: 20120825
  Serious: No
  Sender: FDA-Public Use
  Company Number: US-VERTEX PHARMACEUTICALS INC.-AE-2012-005069

PATIENT
  Sex: Female
  Weight: 73.548 kg

DRUGS (6)
  1. RIBAVIRIN [Concomitant]
     Indication: HEPATITIS C
     Dates: start: 20120227
  2. DICLOFENAC SODIUM [Concomitant]
  3. ESTROGEN [Concomitant]
  4. PEGASYS [Concomitant]
     Indication: HEPATITIS C
     Dates: start: 20120227
  5. INCIVEK [Suspect]
     Indication: HEPATITIS C
     Route: 048
     Dates: start: 20120227
  6. CYTOLOPRAM [Concomitant]

REACTIONS (3)
  - PRURITUS [None]
  - RASH [None]
  - ANORECTAL DISCOMFORT [None]
